FAERS Safety Report 6087224-5 (Version None)
Quarter: 2009Q1

REPORT INFORMATION
  Report Type: 
  Country: None (occurrence: None)
  Receive Date: 20090219
  Receipt Date: 20081203
  Transmission Date: 20090719
  Serious: No
  Sender: FDA-Public Use
  Company Number: WAES 0812USA01316

PATIENT
  Sex: Male

DRUGS (6)
  1. ISENTRESS [Suspect]
     Indication: HIV TEST POSITIVE
     Dosage: 400 MG/BID/PO
     Route: 048
     Dates: start: 20080501
  2. BACTRIM [Concomitant]
  3. DARUNAVIR [Concomitant]
  4. ETRAVIRINE [Concomitant]
  5. PHENYTOIN [Concomitant]
  6. RITONAVIR [Concomitant]

REACTIONS (3)
  - AURA [None]
  - HALO VISION [None]
  - PHOTOPSIA [None]
